FAERS Safety Report 15404607 (Version 3)
Quarter: 2018Q3

REPORT INFORMATION
  Report Type: Spontaneous
  Country: US (occurrence: US)
  Receive Date: 20180919
  Receipt Date: 20180925
  Transmission Date: 20181010
  Serious: Yes (Other)
  Sender: FDA-Public Use
  Company Number: US-AMGEN-USASP2018128889

PATIENT
  Age: 74 Year
  Sex: Female

DRUGS (2)
  1. ENBREL [Suspect]
     Active Substance: ETANERCEPT
     Indication: RHEUMATOID ARTHRITIS
     Dosage: 50 MG, (EVERY FIVE DAYS)
     Route: 065
     Dates: start: 1998
  2. ENBREL [Suspect]
     Active Substance: ETANERCEPT
     Dosage: 50 MG, QWK
     Route: 065

REACTIONS (12)
  - Accidental exposure to product [Unknown]
  - Injection site swelling [Recovered/Resolved]
  - Dry mouth [Unknown]
  - Wrong technique in product usage process [Unknown]
  - Injection site pruritus [Recovered/Resolved]
  - Rheumatoid arthritis [Unknown]
  - Off label use [Unknown]
  - Osteoarthritis [Unknown]
  - Injection site erythema [Recovered/Resolved]
  - Incorrect dose administered by device [Unknown]
  - Tinnitus [Unknown]
  - Injection site pain [Unknown]

NARRATIVE: CASE EVENT DATE: 2018
